FAERS Safety Report 9166709 (Version 1)
Quarter: 2013Q1

REPORT INFORMATION
  Report Type: Spontaneous
  Country: IN (occurrence: IN)
  Receive Date: 20130316
  Receipt Date: 20130316
  Transmission Date: 20140127
  Serious: Yes (Hospitalization)
  Sender: FDA-Public Use
  Company Number: IN-ACCORD-016795

PATIENT
  Age: 16 Month
  Sex: Female

DRUGS (2)
  1. TOPIRAMATE [Suspect]
     Indication: CONVULSION
  2. VALPROATE SODIUM [Suspect]
     Indication: CONVULSION

REACTIONS (5)
  - Metabolic disorder [Recovering/Resolving]
  - Lethargy [Unknown]
  - Somnolence [Unknown]
  - Dyspnoea [Unknown]
  - Convulsion [Recovering/Resolving]
